FAERS Safety Report 4333171-6 (Version None)
Quarter: 2004Q2

REPORT INFORMATION
  Report Type: 
  Country: None (occurrence: None)
  Receive Date: 20040401
  Receipt Date: 20040323
  Transmission Date: 20050107
  Serious: Yes (Hospitalization)
  Sender: FDA-Public Use
  Company Number: 200330031BWH

PATIENT
  Age: 89 Year
  Sex: Male
  Weight: 74.8435 kg

DRUGS (14)
  1. MOXIFLOXACIN [Suspect]
     Indication: PNEUMONIA
     Dosage: QD, INTRAVENOUS
     Route: 042
     Dates: start: 20031204, end: 20031206
  2. FLOMAX [Concomitant]
  3. ASPIRIN [Concomitant]
  4. PROSCAR [Concomitant]
  5. COUMADIN [Concomitant]
  6. LASIX [Concomitant]
  7. TYLENOL (CAPLET) [Concomitant]
  8. LOPRESSOR [Concomitant]
  9. AMIODARONE [Concomitant]
  10. K-DUR 10 [Concomitant]
  11. MIDAZOLAM HCL [Concomitant]
  12. MEPERIDINE HCL [Concomitant]
  13. BENZOCAINE [Concomitant]
  14. ROMAZICON [Concomitant]

REACTIONS (4)
  - CLOSTRIDIUM COLITIS [None]
  - GENERAL PHYSICAL HEALTH DETERIORATION [None]
  - HYPOKALAEMIA [None]
  - PNEUMONIA [None]
